FAERS Safety Report 7617488-5 (Version None)
Quarter: 2011Q3

REPORT INFORMATION
  Report Type: 
  Country: None (occurrence: None)
  Receive Date: 20110718
  Receipt Date: 20110715
  Transmission Date: 20111222
  Serious: No
  Sender: FDA-Public Use
  Company Number: US-PFIZER INC-2011161069

PATIENT
  Sex: Female
  Weight: 56.689 kg

DRUGS (2)
  1. LYRICA [Suspect]
     Indication: CONVULSION
     Dosage: 250 MG, 2X/DAY
     Route: 048
     Dates: start: 20100401
  2. LACOSAMIDE [Concomitant]
     Dosage: UNK

REACTIONS (6)
  - INCREASED TENDENCY TO BRUISE [None]
  - WEIGHT INCREASED [None]
  - ANIMAL BITE [None]
  - OEDEMA PERIPHERAL [None]
  - HAEMORRHAGE [None]
  - JOINT SWELLING [None]
